FAERS Safety Report 6687018-3 (Version None)
Quarter: 2010Q2

REPORT INFORMATION
  Report Type: 
  Country: None (occurrence: None)
  Receive Date: 20100416
  Receipt Date: 20100416
  Transmission Date: 20101027
  Serious: Yes (Disabling)
  Sender: FDA-Public Use
  Company Number: None

PATIENT
  Age: 63 Year
  Sex: Female
  Weight: 54.4316 kg

DRUGS (2)
  1. FOSAMAX [Suspect]
     Indication: OSTEOPOROSIS
     Dosage: 1 70MG. TABLET WEEKLY
     Dates: start: 20030519, end: 20091204
  2. ALENDRONATE SODIUM [Suspect]

REACTIONS (6)
  - IMMOBILE [None]
  - PAIN [None]
  - PRODUCT SUBSTITUTION ISSUE [None]
  - RIB FRACTURE [None]
  - SPINAL DISORDER [None]
  - SPINAL FRACTURE [None]
